FAERS Safety Report 21208922 (Version 1)
Quarter: 2022Q3

REPORT INFORMATION
  Report Type: Spontaneous
  Country: US (occurrence: None)
  Receive Date: 20220812
  Receipt Date: 20220812
  Transmission Date: 20221027
  Serious: Yes (Other)
  Sender: FDA-Public Use
  Company Number: None

PATIENT
  Age: 54 Year
  Sex: Female
  Weight: 105.3 kg

DRUGS (7)
  1. PACLITAXEL [Suspect]
     Active Substance: PACLITAXEL
     Indication: Breast cancer female
     Dosage: FREQUENCY : WEEKLY;?
     Route: 041
  2. KEYTRUDA [Concomitant]
     Active Substance: PEMBROLIZUMAB
     Dates: start: 20220808, end: 20220808
  3. AKYNZEO [Concomitant]
     Dates: start: 20220808, end: 20220808
  4. DEXAMETHASONE [Concomitant]
     Active Substance: DEXAMETHASONE
     Dates: start: 20220808, end: 20220808
  5. PEPCID [Concomitant]
     Active Substance: FAMOTIDINE
     Dates: start: 20220808, end: 20220808
  6. CARBOPLATIN [Concomitant]
     Active Substance: CARBOPLATIN
     Dates: start: 20220808, end: 20220808
  7. BENADRYL [Concomitant]
     Active Substance: DIPHENHYDRAMINE HYDROCHLORIDE
     Dates: start: 20220808, end: 20220808

REACTIONS (4)
  - Dyspnoea [None]
  - Chest discomfort [None]
  - Flushing [None]
  - Infusion related reaction [None]

NARRATIVE: CASE EVENT DATE: 20220808
